FAERS Safety Report 16931253 (Version 1)
Quarter: 2019Q4

REPORT INFORMATION
  Report Type: Spontaneous
  Country: US (occurrence: US)
  Receive Date: 20191017
  Receipt Date: 20191017
  Transmission Date: 20200122
  Serious: Yes (Hospitalization, Other)
  Sender: FDA-Public Use
  Company Number: US-AMERICAN REGENT INC-2019002248

PATIENT
  Age: 69 Year
  Sex: Male

DRUGS (2)
  1. NITROGLYCERIN INJECTION, USP (4805-10) [Suspect]
     Active Substance: NITROGLYCERIN
     Indication: PULMONARY OEDEMA
     Dosage: UNK
     Route: 041
  2. NITROGLYCERIN INJECTION, USP (4805-10) [Suspect]
     Active Substance: NITROGLYCERIN
     Indication: HYPERTENSION

REACTIONS (1)
  - Drug ineffective for unapproved indication [Unknown]
